FAERS Safety Report 23226867 (Version 1)
Quarter: 2023Q4

REPORT INFORMATION
  Report Type: Report from Study
  Country: US (occurrence: None)
  Receive Date: 20231124
  Receipt Date: 20231124
  Transmission Date: 20240109
  Serious: Yes (Other)
  Sender: FDA-Public Use
  Company Number: 2023A267224

PATIENT
  Sex: Female

DRUGS (1)
  1. LYNPARZA [Suspect]
     Active Substance: OLAPARIB
     Indication: Ovarian cancer
     Route: 048
     Dates: start: 20231103

REACTIONS (8)
  - Balance disorder [Unknown]
  - Fall [Unknown]
  - Urinary tract infection [Unknown]
  - Brain fog [Unknown]
  - Neuropathy peripheral [Unknown]
  - Influenza like illness [Unknown]
  - Speech disorder [Unknown]
  - Feeling abnormal [Unknown]
